FAERS Safety Report 18833002 (Version 2)
Quarter: 2021Q1

REPORT INFORMATION
  Report Type: Spontaneous
  Country: US (occurrence: US)
  Receive Date: 20210203
  Receipt Date: 20210211
  Transmission Date: 20210419
  Serious: Yes (Life-Threatening, Other)
  Sender: FDA-Public Use
  Company Number: US-009507513-2102USA000688

PATIENT
  Age: 42 Year
  Sex: Female

DRUGS (4)
  1. LEUPROLIDE [Concomitant]
     Active Substance: LEUPROLIDE
     Dosage: UNK
     Dates: start: 20210117
  2. FOLLISTIM AQ [Suspect]
     Active Substance: FOLLITROPIN
     Indication: INFERTILITY FEMALE
     Dosage: UNK
     Route: 058
     Dates: start: 20210119, end: 20210128
  3. FOLLISTIM AQ [Suspect]
     Active Substance: FOLLITROPIN
  4. MENOPUR [Suspect]
     Active Substance: FOLLITROPIN\LUTEINIZING HORMONE
     Dosage: UNK
     Dates: start: 20210119

REACTIONS (3)
  - Rash [Recovering/Resolving]
  - Urticaria [Recovering/Resolving]
  - Lip swelling [Recovering/Resolving]

NARRATIVE: CASE EVENT DATE: 20210125
